FAERS Safety Report 23351219 (Version 1)
Quarter: 2023Q4

REPORT INFORMATION
  Report Type: Report from Study
  Country: US (occurrence: US)
  Receive Date: 20231229
  Receipt Date: 20231229
  Transmission Date: 20240109
  Serious: Yes (Other)
  Sender: FDA-Public Use
  Company Number: US-BAYER-2023A185304

PATIENT
  Age: 89 Year
  Sex: Male

DRUGS (2)
  1. NUBEQA [Suspect]
     Active Substance: DAROLUTAMIDE
     Indication: Prostate cancer
     Dosage: 600 MG, BID
     Dates: start: 202208
  2. NUBEQA [Suspect]
     Active Substance: DAROLUTAMIDE
     Indication: Prostate cancer
     Dosage: 300MG TABLET IN THE MORNING AND 600MG BY MOUTH IN THE EVENING
     Dates: start: 202311

REACTIONS (3)
  - Brain fog [Recovering/Resolving]
  - Balance disorder [Recovering/Resolving]
  - Arthralgia [Not Recovered/Not Resolved]
